FAERS Safety Report 7979254-0 (Version None)
Quarter: 2011Q4

REPORT INFORMATION
  Report Type: 
  Country: None (occurrence: None)
  Receive Date: 20111213
  Receipt Date: 20111213
  Transmission Date: 20120403
  Serious: Yes (Hospitalization)
  Sender: FDA-Public Use
  Company Number: None

PATIENT
  Age: 55 Year
  Sex: Male
  Weight: 79 kg

DRUGS (1)
  1. ENALAPRIL MALEATE [Suspect]
     Indication: HYPERTENSION
     Dosage: 20 MG PM PO
     Route: 048
     Dates: start: 20101026, end: 20111201

REACTIONS (3)
  - CONDITION AGGRAVATED [None]
  - PHARYNGEAL OEDEMA [None]
  - ANGIOEDEMA [None]
